FAERS Safety Report 14292047 (Version 1)
Quarter: 2017Q4

REPORT INFORMATION
  Report Type: Spontaneous
  Country: FR (occurrence: FR)
  Receive Date: 20171215
  Receipt Date: 20171215
  Transmission Date: 20180321
  Serious: Yes (Hospitalization, Other)
  Sender: FDA-Public Use
  Company Number: FR-OTSUKA-17293283

PATIENT
  Age: 29 Year
  Sex: Male

DRUGS (7)
  1. HALOPERIDOL. [Suspect]
     Active Substance: HALOPERIDOL
     Dosage: 200 MG, Q4WK
     Route: 030
  2. LEPTICUR [Suspect]
     Active Substance: TROPATEPINE HYDROCHLORIDE
     Dosage: TABLETS
     Route: 048
  3. DEPAKOTE [Suspect]
     Active Substance: DIVALPROEX SODIUM
     Dosage: GASTRO-RESISTANT TABLET
     Route: 048
     Dates: start: 20121204
  4. VALIUM [Concomitant]
     Active Substance: DIAZEPAM
     Dosage: 1DF = 1 BULB
     Route: 030
  5. ABILIFY [Suspect]
     Active Substance: ARIPIPRAZOLE
     Indication: SCHIZOPHRENIA
     Dosage: UNK
     Route: 048
     Dates: end: 20121204
  6. VALIUM [Suspect]
     Active Substance: DIAZEPAM
     Dosage: 10 DROPS IN THE MORNING AND THE EVENING AND 20 DROPS AT BEDTIME
     Route: 048
  7. TERCIAN [Concomitant]
     Active Substance: CYAMEMAZINE
     Dosage: 50 DROPS AT BREAKFAST AND LUNCH, 200 DROPS AT BEDTIME AND 50 DROPS IF AGITATION.

REACTIONS (2)
  - Pulmonary embolism [Unknown]
  - Deep vein thrombosis [Unknown]

NARRATIVE: CASE EVENT DATE: 20121206
